FAERS Safety Report 18221890 (Version 1)
Quarter: 2020Q3

REPORT INFORMATION
  Report Type: Spontaneous
  Country: US (occurrence: US)
  Receive Date: 20200901
  Receipt Date: 20200901
  Transmission Date: 20201103
  Serious: No
  Sender: FDA-Public Use
  Company Number: None

PATIENT
  Age: 77 Year
  Sex: Female
  Weight: 69.75 kg

DRUGS (5)
  1. ALEVE [Concomitant]
     Active Substance: NAPROXEN SODIUM
  2. IBUPROFEN. [Concomitant]
     Active Substance: IBUPROFEN
  3. ACYCLOVIR. [Concomitant]
     Active Substance: ACYCLOVIR
     Indication: BLOOD CHOLESTEROL INCREASED
  4. CITALOPRAM [Concomitant]
     Active Substance: CITALOPRAM HYDROBROMIDE
  5. EZETIMIBE 10 MG TABLET [Suspect]
     Active Substance: EZETIMIBE
     Indication: BLOOD CHOLESTEROL INCREASED
     Dosage: ?          QUANTITY:1 TABLET(S);?
     Route: 048
     Dates: start: 20200610, end: 20200730

REACTIONS (3)
  - Chills [None]
  - Abdominal discomfort [None]
  - Abdominal pain upper [None]

NARRATIVE: CASE EVENT DATE: 20200715
